FAERS Safety Report 20656226 (Version 2)
Quarter: 2022Q2

REPORT INFORMATION
  Report Type: Report from Study
  Country: US (occurrence: US)
  Receive Date: 20220331
  Receipt Date: 20220420
  Transmission Date: 20220720
  Serious: Yes (Hospitalization, Other)
  Sender: FDA-Public Use
  Company Number: US-BIOVITRUM-2022US04289

PATIENT
  Age: 58 Year
  Sex: Female

DRUGS (12)
  1. KINERET [Suspect]
     Active Substance: ANAKINRA
     Indication: Pericardial disease
     Route: 058
     Dates: start: 202102
  2. KINERET [Suspect]
     Active Substance: ANAKINRA
     Indication: Pericarditis
     Route: 065
     Dates: start: 2018
  3. KINERET [Suspect]
     Active Substance: ANAKINRA
     Indication: Rheumatoid arthritis
  4. KEFLEX [Concomitant]
     Active Substance: CEPHALEXIN
  5. XARELTO [Concomitant]
     Active Substance: RIVAROXABAN
     Indication: Thrombosis
  6. PENICILLIN G [Concomitant]
     Active Substance: PENICILLIN G
  7. MORPHINE [Concomitant]
     Active Substance: MORPHINE
  8. VITAMINS [Concomitant]
     Active Substance: VITAMINS
  9. BIOTINE [Concomitant]
  10. UNSPECIFIED INGREDIENT [Concomitant]
     Active Substance: UNSPECIFIED INGREDIENT
  11. BROCCOLI [Concomitant]
     Active Substance: BROCCOLI
  12. PROZAC [Concomitant]
     Active Substance: FLUOXETINE HYDROCHLORIDE

REACTIONS (10)
  - COVID-19 [Recovered/Resolved]
  - Angina pectoris [Recovered/Resolved]
  - Thrombosis [Unknown]
  - Neoplasm malignant [Unknown]
  - Alopecia [Unknown]
  - Nervous system disorder [Unknown]
  - Anxiety [Unknown]
  - Red blood cell count increased [Unknown]
  - Product dose omission issue [Unknown]
  - Off label use [Unknown]

NARRATIVE: CASE EVENT DATE: 20210201
